FAERS Safety Report 9372695 (Version 2)
Quarter: 2014Q2

REPORT INFORMATION
  Report Type: Spontaneous
  Country: US (occurrence: US)
  Receive Date: 20130627
  Receipt Date: 20140626
  Transmission Date: 20141212
  Serious: Yes (Death)
  Sender: FDA-Public Use
  Company Number: US-MYLANLABS-2013S1005992

PATIENT
  Age: 23 Year
  Sex: Male
  Weight: 126.1 kg

DRUGS (32)
  1. CLOZAPINE TABLETS [Suspect]
     Indication: PSYCHOTIC DISORDER
     Route: 048
     Dates: start: 20130222, end: 20130225
  2. CLOZAPINE TABLETS [Suspect]
     Indication: AGGRESSION
     Route: 048
     Dates: start: 20130222, end: 20130225
  3. CLOZAPINE TABLETS [Suspect]
     Indication: PARANOIA
     Route: 048
     Dates: start: 20130222, end: 20130225
  4. CLOZAPINE TABLETS [Suspect]
     Indication: PSYCHOTIC DISORDER
     Route: 048
     Dates: start: 20130225, end: 20130310
  5. CLOZAPINE TABLETS [Suspect]
     Indication: AGGRESSION
     Route: 048
     Dates: start: 20130225, end: 20130310
  6. CLOZAPINE TABLETS [Suspect]
     Indication: PARANOIA
     Route: 048
     Dates: start: 20130225, end: 20130310
  7. CLOZAPINE TABLETS [Suspect]
     Indication: PSYCHOTIC DISORDER
     Route: 048
     Dates: start: 20130312, end: 20130312
  8. CLOZAPINE TABLETS [Suspect]
     Indication: AGGRESSION
     Route: 048
     Dates: start: 20130312, end: 20130312
  9. CLOZAPINE TABLETS [Suspect]
     Indication: PARANOIA
     Route: 048
     Dates: start: 20130312, end: 20130312
  10. ZITHROMAX [Concomitant]
     Route: 042
     Dates: start: 20130313, end: 20130313
  11. QUETIAPINE [Concomitant]
     Dosage: 25MG AT 0800 AND 1200, 600MG HS
     Dates: start: 20130215, end: 20130313
  12. INVEGA /05724801/ [Concomitant]
     Dates: start: 20130221, end: 20130311
  13. INVEGA SUSTENNA [Concomitant]
     Dosage: X1 ON 21-FEB-2013 AND 28-FEB-2013
     Dates: start: 20130221, end: 20130228
  14. DEPAKOTE [Concomitant]
     Dosage: EXTENDED RELEASE
     Dates: start: 20130222, end: 20130311
  15. PROVENTIL [Concomitant]
     Indication: DYSPNOEA
     Dosage: Q6HR PRN
     Dates: start: 20130215, end: 20130311
  16. DIAZEPAM [Concomitant]
     Dosage: PRN
     Route: 042
     Dates: start: 20130311, end: 20130313
  17. PROZAC [Concomitant]
     Dates: start: 20130215
  18. IBUPROFEN [Concomitant]
     Indication: PAIN
     Dosage: PRN
  19. METOPROLOL [Concomitant]
     Dosage: PRN
     Dates: start: 20130313
  20. COUMADIN [Concomitant]
     Dates: start: 20130311, end: 20130312
  21. KEFLEX [Concomitant]
     Dates: start: 20130310, end: 20130311
  22. HEPARIN [Concomitant]
     Dosage: WEIGHT BASED PROTOCOL
     Dates: start: 20130310
  23. LOVENOX [Concomitant]
     Dates: start: 20130311, end: 20130313
  24. ALBUTEROL [Concomitant]
     Route: 055
  25. PANTOPRAZOLE [Concomitant]
  26. PRAZOSIN [Concomitant]
  27. OLANZAPINE [Concomitant]
     Indication: AGITATION
  28. CLONIDINE [Concomitant]
     Indication: BLOOD PRESSURE
     Route: 048
  29. HALOPERIDOL [Concomitant]
     Indication: PSYCHOTIC DISORDER
     Dosage: AGITATION OR PSYCHOSIS
  30. HYDROXYZINE [Concomitant]
     Indication: ANXIETY
  31. MAGNESIUM HYDROXIDE [Concomitant]
     Indication: CONSTIPATION
     Dosage: BID PRN
     Route: 048
  32. ZIPRASIDONE [Concomitant]
     Indication: PSYCHOTIC DISORDER
     Dosage: BID PRN FOR PSYCHOSIS OR AGITATION
     Route: 048

REACTIONS (4)
  - Myocarditis [Fatal]
  - Respiratory arrest [Fatal]
  - Pulmonary embolism [Fatal]
  - Deep vein thrombosis [Fatal]
